FAERS Safety Report 4556887-5 (Version None)
Quarter: 2005Q1

REPORT INFORMATION
  Report Type: 
  Country: None (occurrence: None)
  Receive Date: 20050118
  Receipt Date: 20050103
  Transmission Date: 20050727
  Serious: Yes (Other)
  Sender: FDA-Public Use
  Company Number: 2005002401

PATIENT
  Age: 90 Year
  Sex: Female

DRUGS (3)
  1. CELEBREX [Suspect]
     Indication: OSTEOARTHRITIS
     Dosage: 200 MG (200 MG, 1 IN 1 D), ORAL
     Route: 048
  2. FUROSEMIDE [Concomitant]
  3. ANALGESICS (ANALGESICS) [Concomitant]

REACTIONS (1)
  - CARDIAC FAILURE [None]
